FAERS Safety Report 5486099-2 (Version None)
Quarter: 2007Q4

REPORT INFORMATION
  Report Type: 
  Country: None (occurrence: None)
  Receive Date: 20071015
  Receipt Date: 20071003
  Transmission Date: 20080405
  Serious: Yes (Other)
  Sender: FDA-Public Use
  Company Number: GB-PFIZER INC-2007083923

PATIENT
  Age: 67 Year
  Sex: Female
  Weight: 68.4 kg

DRUGS (13)
  1. CHAMPIX [Suspect]
     Indication: SMOKING CESSATION THERAPY
     Route: 048
     Dates: start: 20070826, end: 20070909
  2. ATORVASTATIN CALCIUM [Concomitant]
     Indication: BLOOD CHOLESTEROL INCREASED
     Route: 048
  3. BECLOMETHASONE DIPROPIONATE [Concomitant]
     Indication: CHRONIC OBSTRUCTIVE PULMONARY DISEASE
     Route: 055
  4. CHLORPHENIRAMINE MALEATE [Concomitant]
     Indication: SINUSITIS
     Route: 048
  5. COD LIVER OIL/TOCOPHERYL ACETATE [Concomitant]
  6. CONJUGATED ESTROGEN/MEDROXYPROGESTERONE ACETA [Concomitant]
     Route: 048
  7. GARLIC [Concomitant]
  8. IBUPROFEN [Concomitant]
     Indication: BACK PAIN
     Route: 048
  9. LANSOPRAZOLE [Concomitant]
     Indication: HIATUS HERNIA
     Route: 048
  10. LEVOTHYROXINE SODIUM [Concomitant]
     Indication: HYPOTHYROIDISM
     Route: 048
  11. SALBUTAMOL [Concomitant]
     Indication: CHRONIC OBSTRUCTIVE PULMONARY DISEASE
     Route: 055
  12. SALMETEROL [Concomitant]
     Indication: CHRONIC OBSTRUCTIVE PULMONARY DISEASE
     Route: 055
  13. SERTRALINE HYDROCHLORIDE [Concomitant]
     Indication: DEPRESSION
     Route: 048

REACTIONS (3)
  - HYPERSOMNIA [None]
  - NIGHTMARE [None]
  - SUICIDAL IDEATION [None]
